FAERS Safety Report 9120959 (Version 1)
Quarter: 2013Q1

REPORT INFORMATION
  Report Type: Spontaneous
  Country: US (occurrence: US)
  Receive Date: 20130226
  Receipt Date: 20130226
  Transmission Date: 20140127
  Serious: Yes (Hospitalization)
  Sender: FDA-Public Use
  Company Number: US-GLAXOSMITHKLINE-B0870581A

PATIENT
  Age: 37 Year
  Sex: Female

DRUGS (1)
  1. TOPOTECAN [Suspect]
     Indication: OVARIAN NEOPLASM
     Route: 065

REACTIONS (19)
  - Acute febrile neutrophilic dermatosis [Recovering/Resolving]
  - Eye irritation [Unknown]
  - Rash papular [Unknown]
  - Rash vesicular [Unknown]
  - Dermatitis [Unknown]
  - Conjunctivitis [Unknown]
  - Herpes zoster [Unknown]
  - Pruritus [Unknown]
  - Dry eye [Unknown]
  - Vision blurred [Unknown]
  - Diplopia [Unknown]
  - Papule [Unknown]
  - Rash pustular [Unknown]
  - Skin erosion [Unknown]
  - Rash macular [Unknown]
  - Staphylococcal infection [Unknown]
  - Impetigo [Unknown]
  - Neutrophilic dermatosis [Unknown]
  - Oedema [Unknown]
